FAERS Safety Report 5867248-0 (Version None)
Quarter: 2008Q3

REPORT INFORMATION
  Report Type: 
  Country: None (occurrence: None)
  Receive Date: 20080902
  Receipt Date: 20080821
  Transmission Date: 20090109
  Serious: Yes (Hospitalization)
  Sender: FDA-Public Use
  Company Number: DE-MERCK-0808USA04128

PATIENT
  Age: 70 Year
  Sex: Female

DRUGS (1)
  1. DECADRON SRC [Suspect]
     Indication: RHEUMATOID ARTHRITIS
     Route: 048

REACTIONS (2)
  - LIPOMATOUS HYPERTROPHY OF THE INTERATRIAL SEPTUM [None]
  - VENTRICULAR FIBRILLATION [None]
